FAERS Safety Report 15470275 (Version 2)
Quarter: 2018Q4

REPORT INFORMATION
  Report Type: Spontaneous
  Country: US (occurrence: US)
  Receive Date: 20181005
  Receipt Date: 20181012
  Transmission Date: 20190205
  Serious: Yes (Other)
  Sender: FDA-Public Use
  Company Number: US-BAUSCH-BL-2018-026778

PATIENT
  Sex: Female

DRUGS (1)
  1. OCEAN SALINE NASAL SPRAY [Suspect]
     Active Substance: SODIUM CHLORIDE
     Indication: ROUTINE HEALTH MAINTENANCE
     Dosage: USED WHENEVER REQUIRED
     Route: 045
     Dates: start: 201801

REACTIONS (8)
  - Sinusitis [Recovering/Resolving]
  - Headache [Recovering/Resolving]
  - Dizziness [Recovering/Resolving]
  - Product lot number issue [Unknown]
  - Bronchitis [Recovering/Resolving]
  - Treatment noncompliance [Unknown]
  - Loss of consciousness [Unknown]
  - Laryngitis [Recovering/Resolving]

NARRATIVE: CASE EVENT DATE: 20180826
